FAERS Safety Report 13232269 (Version 2)
Quarter: 2017Q2

REPORT INFORMATION
  Report Type: Report from Study
  Country: US (occurrence: US)
  Receive Date: 20170214
  Receipt Date: 20170417
  Transmission Date: 20170830
  Serious: Yes (Other)
  Sender: FDA-Public Use
  Company Number: US-TEVA-739314USA

PATIENT
  Age: 43 Year
  Sex: Male

DRUGS (5)
  1. NICODERM CQ [Concomitant]
     Active Substance: NICOTINE
     Dosage: 21 MILLIGRAM DAILY;
  2. CLOZAPINE. [Suspect]
     Active Substance: CLOZAPINE
     Route: 048
  3. HALDOL [Concomitant]
     Active Substance: HALOPERIDOL
     Route: 030
  4. NICOTROL [Concomitant]
     Active Substance: NICOTINE
     Dosage: PRN CRAVING
     Route: 048
  5. DEPAKOTE ER [Concomitant]
     Active Substance: DIVALPROEX SODIUM
     Route: 048

REACTIONS (1)
  - Granulocytopenia [Recovered/Resolved]

NARRATIVE: CASE EVENT DATE: 20170302
